FAERS Safety Report 13984165 (Version 3)
Quarter: 2018Q1

REPORT INFORMATION
  Report Type: Report from Study
  Country: US (occurrence: US)
  Receive Date: 20170918
  Receipt Date: 20180315
  Transmission Date: 20180508
  Serious: Yes (Life-Threatening, Hospitalization, Other)
  Sender: FDA-Public Use
  Company Number: US-TEVA-807036USA

PATIENT
  Age: 16 Year
  Sex: Male
  Weight: 51.3 kg

DRUGS (27)
  1. CYTARABINE HYDROCHLORIDE 100MG/5ML SDV + 500MG/10ML SDV [Suspect]
     Active Substance: CYTARABINE HYDROCHLORIDE
     Dosage: 130 MILLIGRAM DAILY;
     Route: 058
     Dates: start: 20170724, end: 20170727
  2. INCB018424 [Suspect]
     Active Substance: RUXOLITINIB
     Dosage: 170 MILLIGRAM DAILY;
     Route: 048
     Dates: start: 20170724, end: 20170806
  3. MERCAPTOPURINE. [Suspect]
     Active Substance: MERCAPTOPURINE
     Indication: ACUTE LYMPHOCYTIC LEUKAEMIA
     Dosage: 103.5714 MILLIGRAM DAILY;
     Route: 048
     Dates: start: 20170619, end: 20170702
  4. METHOTREXATE. [Suspect]
     Active Substance: METHOTREXATE
     Indication: ACUTE LYMPHOCYTIC LEUKAEMIA
     Route: 037
     Dates: start: 20170620, end: 20170620
  5. METHOTREXATE. [Suspect]
     Active Substance: METHOTREXATE
     Route: 042
     Dates: start: 20170829
  6. LEUCOVORIN. [Suspect]
     Active Substance: LEUCOVORIN
     Indication: ACUTE LYMPHOCYTIC LEUKAEMIA
     Dates: start: 201708
  7. DANUICIN (DAUNORUBICIN HYDROCHLORIDE) [Suspect]
     Active Substance: DAUNORUBICIN HYDROCHLORIDE
     Indication: ACUTE LYMPHOCYTIC LEUKAEMIA
     Route: 065
  8. CYTARABINE HYDROCHLORIDE 100MG/5ML SDV + 500MG/10ML SDV [Suspect]
     Active Substance: CYTARABINE HYDROCHLORIDE
     Indication: ACUTE LYMPHOCYTIC LEUKAEMIA
     Dosage: 130 MILLIGRAM DAILY;
     Route: 058
     Dates: start: 20170619, end: 20170622
  9. VINCRISTINE [Suspect]
     Active Substance: VINCRISTINE
     Route: 042
     Dates: start: 20170807, end: 20170807
  10. CYCLOPHOSPHAMIDE. [Suspect]
     Active Substance: CYCLOPHOSPHAMIDE
     Indication: ACUTE LYMPHOCYTIC LEUKAEMIA
     Route: 042
     Dates: start: 20170619, end: 20170619
  11. METHOTREXATE. [Suspect]
     Active Substance: METHOTREXATE
     Route: 037
     Dates: start: 20170711, end: 20170711
  12. CYTARABINE HYDROCHLORIDE 100MG/5ML SDV + 500MG/10ML SDV [Suspect]
     Active Substance: CYTARABINE HYDROCHLORIDE
     Dosage: 130 MILLIGRAM DAILY;
     Route: 058
     Dates: start: 20170731, end: 20170831
  13. VINCRISTINE [Suspect]
     Active Substance: VINCRISTINE
     Route: 042
     Dates: start: 20170710, end: 20170710
  14. VINCRISTINE [Suspect]
     Active Substance: VINCRISTINE
     Route: 042
     Dates: start: 20170829
  15. INCB018424 [Suspect]
     Active Substance: RUXOLITINIB
     Dosage: 160 MILLIGRAM DAILY;
     Route: 048
     Dates: start: 20170829, end: 20170906
  16. CYCLOPHOSPHAMIDE. [Suspect]
     Active Substance: CYCLOPHOSPHAMIDE
     Route: 042
     Dates: start: 20170624, end: 20170624
  17. MERCAPTOPURINE. [Suspect]
     Active Substance: MERCAPTOPURINE
     Dosage: 100 MILLIGRAM DAILY;
     Route: 048
     Dates: start: 20170724, end: 20170806
  18. MERCAPTOPURINE. [Suspect]
     Active Substance: MERCAPTOPURINE
     Dates: start: 20170829, end: 20170906
  19. PEGASPARGASE [Suspect]
     Active Substance: PEGASPARGASE
     Indication: ACUTE LYMPHOCYTIC LEUKAEMIA
     Route: 042
     Dates: start: 20170703, end: 20170703
  20. PREDNISONE. [Suspect]
     Active Substance: PREDNISONE
     Indication: ACUTE LYMPHOCYTIC LEUKAEMIA
     Route: 048
  21. CYTARABINE HYDROCHLORIDE 100MG/5ML SDV + 500MG/10ML SDV [Suspect]
     Active Substance: CYTARABINE HYDROCHLORIDE
     Dosage: 130 MILLIGRAM DAILY;
     Route: 058
     Dates: start: 20170626, end: 20170629
  22. VINCRISTINE [Suspect]
     Active Substance: VINCRISTINE
     Indication: ACUTE LYMPHOCYTIC LEUKAEMIA
     Route: 042
     Dates: start: 20170703, end: 20170703
  23. METHOTREXATE. [Suspect]
     Active Substance: METHOTREXATE
     Route: 037
     Dates: start: 20170627, end: 20170627
  24. METHOTREXATE. [Suspect]
     Active Substance: METHOTREXATE
     Route: 037
     Dates: start: 20170705, end: 20170705
  25. VINCRISTINE [Suspect]
     Active Substance: VINCRISTINE
     Dates: start: 20170814, end: 20170814
  26. PEGASPARGASE [Suspect]
     Active Substance: PEGASPARGASE
     Route: 042
     Dates: start: 20170814, end: 20170814
  27. INCB018424 [Suspect]
     Active Substance: RUXOLITINIB
     Indication: ACUTE LYMPHOCYTIC LEUKAEMIA
     Dosage: 170 MILLIGRAM DAILY;
     Route: 048
     Dates: start: 20170619, end: 20170704

REACTIONS (12)
  - Neutropenia [Recovered/Resolved]
  - Pulmonary embolism [None]
  - Hypercoagulation [None]
  - Pyrexia [Recovered/Resolved]
  - Erythema [None]
  - Procedural complication [None]
  - Skin warm [None]
  - Decreased appetite [Recovered/Resolved]
  - Deep vein thrombosis [None]
  - Pelvic venous thrombosis [None]
  - Vascular access complication [Recovered/Resolved]
  - Thrombosis in device [None]

NARRATIVE: CASE EVENT DATE: 20170823
